FAERS Safety Report 9631464 (Version 1)
Quarter: 2013Q4

REPORT INFORMATION
  Report Type: Spontaneous
  Country: CH (occurrence: None)
  Receive Date: 20131016
  Receipt Date: 20131016
  Transmission Date: 20140711
  Serious: Yes (Other)
  Sender: FDA-Public Use
  Company Number: 20130530

PATIENT
  Age: 9 Year
  Sex: Male
  Weight: 34.1 kg

DRUGS (4)
  1. VENOFER [Suspect]
     Indication: IRON DEFICIENCY
     Route: 042
     Dates: start: 20130730, end: 20130730
  2. AZATHIOPRINE (AZATHIOPRINE) [Concomitant]
  3. PENTASA (MESALAZINE) [Concomitant]
  4. SYTRON(SODIUM FEREDETATE, SODIUM IRONEDATE) [Concomitant]

REACTIONS (5)
  - Thirst [None]
  - Pruritus [None]
  - Cough [None]
  - Urticaria [None]
  - Feeling hot [None]
